FAERS Safety Report 5948971-6 (Version None)
Quarter: 2008Q4

REPORT INFORMATION
  Report Type: 
  Country: None (occurrence: None)
  Receive Date: 20081111
  Receipt Date: 20081030
  Transmission Date: 20090506
  Serious: Yes (Other)
  Sender: FDA-Public Use
  Company Number: US-PFIZER INC-2005121114

PATIENT
  Sex: Female
  Weight: 135.2 kg

DRUGS (14)
  1. DETROL LA [Suspect]
     Indication: HYPERTONIC BLADDER
     Route: 048
     Dates: start: 20050822
  2. DETROL LA [Suspect]
     Indication: INCONTINENCE
  3. TAMBOCOR [Concomitant]
     Route: 065
     Dates: start: 19990101
  4. VERAPAMIL [Concomitant]
     Route: 065
  5. DIGOXIN [Concomitant]
     Route: 065
  6. LIPITOR [Concomitant]
     Route: 065
  7. ZESTRIL [Concomitant]
     Route: 065
  8. VITAMIN E [Concomitant]
     Route: 065
     Dates: start: 19950101
  9. ACETYLSALICYLIC ACID SRT [Concomitant]
     Route: 065
  10. VITAMINS [Concomitant]
     Route: 065
  11. ARMOUR THYROID [Concomitant]
     Route: 065
  12. HAWTHORN [Concomitant]
     Route: 065
  13. COUMADIN [Concomitant]
  14. CARDIZEM [Concomitant]

REACTIONS (25)
  - ALOPECIA [None]
  - ATRIAL FIBRILLATION [None]
  - BLADDER DISORDER [None]
  - BLOOD PRESSURE FLUCTUATION [None]
  - CONSTIPATION [None]
  - CONTUSION [None]
  - DIARRHOEA [None]
  - DRUG INEFFECTIVE [None]
  - DRUG LEVEL FLUCTUATING [None]
  - DRY MOUTH [None]
  - DRY THROAT [None]
  - FAECAL INCONTINENCE [None]
  - FALL [None]
  - LIMB DISCOMFORT [None]
  - LIPOMA [None]
  - LOSS OF CONSCIOUSNESS [None]
  - NAUSEA [None]
  - NODULE [None]
  - PARANOIA [None]
  - POLLAKIURIA [None]
  - PRODUCT CONTAMINATION [None]
  - RIB FRACTURE [None]
  - URINARY INCONTINENCE [None]
  - URINARY TRACT INFECTION [None]
  - VOMITING [None]
